FAERS Safety Report 8585069-5 (Version None)
Quarter: 2012Q3

REPORT INFORMATION
  Report Type: 
  Country: None (occurrence: None)
  Receive Date: 20120810
  Receipt Date: 20120803
  Transmission Date: 20120928
  Serious: Yes (Hospitalization, Other)
  Sender: FDA-Public Use
  Company Number: FR-MERCK-1208FRA003760

PATIENT

DRUGS (11)
  1. HYDROCHLOROTHIAZIDE [Suspect]
     Dosage: 100 MG - 25  MG, QD
     Route: 048
  2. PREVISCAN [Suspect]
     Dosage: 6.25 MG, QD
     Route: 048
     Dates: start: 20120229, end: 20120303
  3. HUMALOG [Concomitant]
     Dosage: 28 IU, QD
     Dates: start: 20120302
  4. PHYSIOTENS [Suspect]
     Dosage: 0.4 MG, QD
     Route: 048
  5. NEBIVOLOL [Suspect]
     Dosage: 5 MG, QD
     Route: 048
  6. ATORVASTATIN [Concomitant]
     Dosage: UNK
     Dates: start: 20120302
  7. INDAPAMIDE [Suspect]
     Dosage: 1.5 MG, QD
     Route: 048
  8. PLAVIX [Concomitant]
     Dosage: UNK
     Dates: start: 20120302
  9. LANTUS [Concomitant]
     Dosage: 19 IU, QD
  10. ENALAPRIL MALEATE [Suspect]
     Indication: HYPERTENSION
     Dosage: 20 MG, QD
     Route: 048
     Dates: end: 20120305
  11. LERCANIDIPINE [Suspect]
     Dosage: 20 MG, QD
     Route: 048
     Dates: end: 20120305

REACTIONS (3)
  - INTERNATIONAL NORMALISED RATIO INCREASED [None]
  - HYPERKALAEMIA [None]
  - RENAL FAILURE ACUTE [None]
